FAERS Safety Report 7272427-4 (Version None)
Quarter: 2011Q1

REPORT INFORMATION
  Report Type: 
  Country: None (occurrence: None)
  Receive Date: 20110203
  Receipt Date: 20101130
  Transmission Date: 20110831
  Serious: Yes (Life-Threatening, Hospitalization)
  Sender: FDA-Public Use
  Company Number: CA-BAYER-201039913NA

PATIENT
  Age: 25 Year
  Sex: Female
  Weight: 54.545 kg

DRUGS (3)
  1. YASMIN [Suspect]
     Dosage: UNK UNK, QD
     Route: 048
  2. NEOCITRAN [ACETYLCYSTEINE] [Concomitant]
     Dosage: UNK
     Route: 048
     Dates: start: 20100802, end: 20100805
  3. ACETAMINOPHEN [Concomitant]
     Indication: MIGRAINE
     Dosage: 2-3 TIMES PER WEEK
     Route: 048

REACTIONS (5)
  - HAEMOPTYSIS [None]
  - CHEST PAIN [None]
  - PULMONARY EMBOLISM [None]
  - DYSPNOEA [None]
  - PLEURAL EFFUSION [None]
